FAERS Safety Report 24399926 (Version 2)
Quarter: 2024Q4

REPORT INFORMATION
  Report Type: Spontaneous
  Country: US (occurrence: US)
  Receive Date: 20241005
  Receipt Date: 20241014
  Transmission Date: 20250115
  Serious: No
  Sender: SANOFI AVENTIS
  Company Number: US-SANOFI-02232503

PATIENT
  Age: 65 Year
  Sex: Female

DRUGS (1)
  1. LANTUS [Suspect]
     Active Substance: INSULIN GLARGINE
     Dosage: 20 IU, BID, 20 UNITS IN THE MORNING AND ANOTHER 20
     Route: 058

REACTIONS (3)
  - Frustration tolerance decreased [Unknown]
  - Off label use [Unknown]
  - Product dispensing issue [Unknown]
